FAERS Safety Report 4304464-3 (Version None)
Quarter: 2004Q1

REPORT INFORMATION
  Report Type: 
  Country: None (occurrence: None)
  Receive Date: 20040225
  Receipt Date: 20040225
  Transmission Date: 20041129
  Serious: Yes (Hospitalization)
  Sender: FDA-Public Use
  Company Number: None

PATIENT
  Age: 69 Year
  Sex: Male
  Weight: 83 kg

DRUGS (8)
  1. PAROXETINE HCL [Suspect]
     Indication: DEPRESSION
  2. WARFARIN SODIUM [Suspect]
     Indication: ATRIAL FIBRILLATION
  3. ALPRAZOLAM [Concomitant]
  4. DOXAZOSIN MESYLATE [Concomitant]
  5. AMLODIPINE [Concomitant]
  6. PAROXETINE HCL [Concomitant]
  7. ATORVASTIN [Concomitant]
  8. VALSARTAN [Concomitant]

REACTIONS (3)
  - CEREBRAL HAEMORRHAGE [None]
  - DRUG INTERACTION [None]
  - PROTHROMBIN TIME PROLONGED [None]
